FAERS Safety Report 7003799-3 (Version None)
Quarter: 2010Q3

REPORT INFORMATION
  Report Type: 
  Country: None (occurrence: None)
  Receive Date: 20100920
  Receipt Date: 20091207
  Transmission Date: 20110219
  Serious: No
  Sender: FDA-Public Use
  Company Number: US-WYE-H12535309

PATIENT
  Age: 69 Year
  Sex: Female

DRUGS (10)
  1. PRISTIQ [Suspect]
     Indication: DEPRESSION
     Route: 048
     Dates: start: 20090101
  2. SPIRIVA [Concomitant]
  3. OXYCODONE HCL [Concomitant]
  4. XALATAN [Concomitant]
  5. LITHIUM [Concomitant]
  6. LASIX [Concomitant]
  7. TIZANIDINE HCL [Concomitant]
  8. PREDNISOLONE [Concomitant]
  9. XANAX [Concomitant]
  10. POTASSIUM [Concomitant]

REACTIONS (3)
  - AMNESIA [None]
  - DISTURBANCE IN ATTENTION [None]
  - DRUG EFFECT DECREASED [None]
